FAERS Safety Report 6470406-8 (Version None)
Quarter: 2009Q4

REPORT INFORMATION
  Report Type: 
  Country: None (occurrence: None)
  Receive Date: 20091202
  Receipt Date: 20091202
  Transmission Date: 20100525
  Serious: Yes (Hospitalization)
  Sender: FDA-Public Use
  Company Number: None

PATIENT
  Sex: Male
  Weight: 58.6 kg

DRUGS (16)
  1. BEVACIZUMAB [Suspect]
     Indication: OESOPHAGEAL CARCINOMA
     Dosage: BEVACIZUMAB 450 MG EVERY 21 DAYS IV
     Route: 042
     Dates: start: 20090528, end: 20091022
  2. OXALIPLATIN [Suspect]
     Indication: OESOPHAGEAL CARCINOMA
     Dosage: OXALIPLATIN 113 MG EVERY 21 DAYS IV
     Route: 042
     Dates: start: 20090528, end: 20091022
  3. METFORMIN HCL [Concomitant]
  4. LOSARTAN [Concomitant]
  5. GLYBURINE [Concomitant]
  6. PLAVIX [Concomitant]
  7. ASPIRIN [Concomitant]
  8. OMEPRAZOLE [Concomitant]
  9. MULTI-VITAMIN [Concomitant]
  10. OXYCODONE HCL [Concomitant]
  11. SPIRONOLACTOEN [Concomitant]
  12. LASIX [Concomitant]
  13. BACLOFEN [Concomitant]
  14. FISH OIL [Concomitant]
  15. COUMADIN [Concomitant]
  16. LOVENOX [Concomitant]

REACTIONS (6)
  - ASCITES [None]
  - DEEP VEIN THROMBOSIS [None]
  - HAEMATOCHEZIA [None]
  - HAEMOPTYSIS [None]
  - INTERNATIONAL NORMALISED RATIO INCREASED [None]
  - OEDEMA PERIPHERAL [None]
